FAERS Safety Report 9557516 (Version 1)
Quarter: 2013Q3

REPORT INFORMATION
  Report Type: Spontaneous
  Country: KR (occurrence: None)
  Receive Date: 20130923
  Receipt Date: 20130923
  Transmission Date: 20140515
  Serious: Yes (Hospitalization)
  Sender: FDA-Public Use
  Company Number: 2013090042

PATIENT
  Age: 37 Year
  Sex: Female

DRUGS (1)
  1. PEG [Suspect]
     Indication: COLONOSCOPY

REACTIONS (7)
  - Aspiration [None]
  - Procedural complication [None]
  - Blood pressure decreased [None]
  - Stress cardiomyopathy [None]
  - Pulmonary alveolar haemorrhage [None]
  - Traumatic lung injury [None]
  - Acute respiratory distress syndrome [None]
